FAERS Safety Report 15639205 (Version 1)
Quarter: 2018Q4

REPORT INFORMATION
  Report Type: Spontaneous
  Country: US (occurrence: US)
  Receive Date: 20181120
  Receipt Date: 20181120
  Transmission Date: 20190205
  Serious: No
  Sender: FDA-Public Use
  Company Number: US-JNJFOC-20150800699

PATIENT
  Sex: Male

DRUGS (17)
  1. IMBRUVICA [Suspect]
     Active Substance: IBRUTINIB
     Indication: CHRONIC LYMPHOCYTIC LEUKAEMIA
     Route: 048
     Dates: start: 20140508
  2. GLIPIZIDE. [Concomitant]
     Active Substance: GLIPIZIDE
  3. POTASSIUM [Concomitant]
     Active Substance: POTASSIUM
  4. GABAPENTIN. [Concomitant]
     Active Substance: GABAPENTIN
  5. PLAVIX [Concomitant]
     Active Substance: CLOPIDOGREL BISULFATE
  6. BENZONATATE. [Concomitant]
     Active Substance: BENZONATATE
  7. FLUTICASONE. [Concomitant]
     Active Substance: FLUTICASONE
  8. ATIVAN [Concomitant]
     Active Substance: LORAZEPAM
  9. MELATONIN [Concomitant]
     Active Substance: MELATONIN
  10. SIMVASTATIN. [Concomitant]
     Active Substance: SIMVASTATIN
  11. GLUCOSAMINE [Concomitant]
     Active Substance: GLUCOSAMINE
  12. LUMIGAN [Concomitant]
     Active Substance: BIMATOPROST
  13. FLOMAX [Concomitant]
     Active Substance: TAMSULOSIN HYDROCHLORIDE
  14. VALACYCLOVIR [Concomitant]
     Active Substance: VALACYCLOVIR HYDROCHLORIDE
  15. IMBRUVICA [Suspect]
     Active Substance: IBRUTINIB
     Indication: CHRONIC LYMPHOCYTIC LEUKAEMIA
     Route: 048
     Dates: start: 20171110
  16. ACARBOSE. [Concomitant]
     Active Substance: ACARBOSE
  17. PRILOSEC [Concomitant]
     Active Substance: OMEPRAZOLE MAGNESIUM

REACTIONS (2)
  - Rash erythematous [Unknown]
  - Arthritis [Unknown]
